FAERS Safety Report 6975288-3 (Version None)
Quarter: 2010Q3

REPORT INFORMATION
  Report Type: 
  Country: None (occurrence: None)
  Receive Date: 20100910
  Receipt Date: 20090226
  Transmission Date: 20110219
  Serious: No
  Sender: FDA-Public Use
  Company Number: US-WYE-H08374809

PATIENT
  Sex: Male
  Weight: 88.53 kg

DRUGS (7)
  1. PRISTIQ [Suspect]
     Indication: ANXIETY
     Route: 048
     Dates: start: 20090223
  2. TRICOR [Concomitant]
  3. PRILOSEC [Concomitant]
  4. ACEON [Concomitant]
  5. TOPROL-XL [Concomitant]
  6. FISH OIL, HYDROGENATED [Concomitant]
  7. ZOCOR [Concomitant]

REACTIONS (1)
  - INSOMNIA [None]
